FAERS Safety Report 18526117 (Version 1)
Quarter: 2020Q4

REPORT INFORMATION
  Report Type: Spontaneous
  Country: BE (occurrence: BE)
  Receive Date: 20201120
  Receipt Date: 20201120
  Transmission Date: 20210114
  Serious: Yes (Hospitalization, Other)
  Sender: FDA-Public Use
  Company Number: BE-AUROBINDO-AUR-APL-2020-056696

PATIENT
  Age: 63 Year
  Sex: Male

DRUGS (1)
  1. AMLODIPINE [Suspect]
     Active Substance: AMLODIPINE BESYLATE
     Indication: HYPERTENSION
     Dosage: UNK
     Route: 065

REACTIONS (18)
  - Ventricular fibrillation [Recovering/Resolving]
  - Chest pain [Recovering/Resolving]
  - Ejection fraction decreased [Recovering/Resolving]
  - Myocarditis [Recovering/Resolving]
  - Respiratory failure [Recovering/Resolving]
  - Cardio-respiratory arrest [Recovering/Resolving]
  - Agitation [Recovering/Resolving]
  - Dyspnoea [Recovering/Resolving]
  - Non-compaction cardiomyopathy [Recovering/Resolving]
  - Sinus rhythm [Recovering/Resolving]
  - Dyskinesia [Recovering/Resolving]
  - Troponin I increased [Recovering/Resolving]
  - Tachycardia [Recovering/Resolving]
  - Ventricular compliance decreased [Recovering/Resolving]
  - Aspiration [Recovering/Resolving]
  - Hypoxia [Recovering/Resolving]
  - Ventricular hypokinesia [Recovering/Resolving]
  - Bundle branch block left [Recovering/Resolving]
